FAERS Safety Report 9278210 (Version 1)
Quarter: 2013Q2

REPORT INFORMATION
  Report Type: Spontaneous
  Country: US (occurrence: US)
  Receive Date: 20130508
  Receipt Date: 20130508
  Transmission Date: 20140414
  Serious: Yes (Other)
  Sender: FDA-Public Use
  Company Number: US-PFIZER INC-2013138804

PATIENT
  Age: 64 Year
  Sex: Female
  Weight: 47.62 kg

DRUGS (3)
  1. XELJANZ [Suspect]
     Indication: RHEUMATOID ARTHRITIS
     Dosage: UNK, 2X/DAY
     Route: 048
     Dates: start: 201212, end: 201304
  2. PREDNISONE [Suspect]
     Dosage: UNK
     Dates: end: 201301
  3. TOPAMAX [Concomitant]
     Dosage: UNK

REACTIONS (6)
  - Drug dependence [Unknown]
  - Blood cholesterol increased [Unknown]
  - Arthritis [Unknown]
  - Asthenia [Unknown]
  - Pain [Unknown]
  - Drug ineffective [Unknown]
